FAERS Safety Report 5509692-7 (Version None)
Quarter: 2007Q4

REPORT INFORMATION
  Report Type: 
  Country: None (occurrence: None)
  Receive Date: 20071107
  Receipt Date: 20071107
  Transmission Date: 20080405
  Serious: Yes (Hospitalization)
  Sender: FDA-Public Use
  Company Number: None

PATIENT
  Age: 54 Year
  Sex: Female
  Weight: 117.9352 kg

DRUGS (7)
  1. TARCEVA [Suspect]
     Indication: BREAST CANCER
     Dosage: 1 TAB DAILY
     Dates: start: 20070419, end: 20071101
  2. FEMARA [Suspect]
     Indication: BREAST CANCER
     Dosage: 1 TAB DAILY
     Dates: start: 20070419
  3. COREG [Concomitant]
  4. NYSTATIN [Concomitant]
  5. ELADIL CREAM [Concomitant]
  6. LOMOTIL [Concomitant]
  7. KEFLEX [Concomitant]

REACTIONS (3)
  - BREAST PAIN [None]
  - BREAST SWELLING [None]
  - ERYTHEMA [None]
